FAERS Safety Report 14874576 (Version 1)
Quarter: 2018Q2

REPORT INFORMATION
  Report Type: Spontaneous
  Country: CN (occurrence: CN)
  Receive Date: 20180510
  Receipt Date: 20180510
  Transmission Date: 20180711
  Serious: Yes (Life-Threatening)
  Sender: FDA-Public Use
  Company Number: CN-SA-2018SA128032

PATIENT
  Age: 61 Year
  Sex: Male
  Weight: 97 kg

DRUGS (1)
  1. STILNOX [Suspect]
     Active Substance: ZOLPIDEM TARTRATE
     Indication: SLEEP DISORDER
     Route: 048
     Dates: start: 20180308, end: 20180313

REACTIONS (1)
  - Tongue disorder [Recovering/Resolving]

NARRATIVE: CASE EVENT DATE: 20180313
